FAERS Safety Report 8281538-6 (Version None)
Quarter: 2012Q2

REPORT INFORMATION
  Report Type: 
  Country: None (occurrence: None)
  Receive Date: 20120410
  Receipt Date: 20120328
  Transmission Date: 20120825
  Serious: Yes (Life-Threatening, Hospitalization, Other)
  Sender: FDA-Public Use
  Company Number: 09-AUR-10282

PATIENT
  Age: 35 Year
  Sex: Female

DRUGS (17)
  1. SEVOFLURANE [Suspect]
     Indication: ANAESTHESIA
     Dosage: INHALATION
     Route: 055
  2. OXYGEN (OXYGEN) [Concomitant]
  3. EPINEPHRINE [Suspect]
     Indication: ANAESTHESIA
     Dosage: (1 MG), INTRAVENOUS BOLUS, UNKNOWN (4 TOTAL), INTRAVENOUS BOLUS
     Route: 040
  4. EPINEPHRINE [Suspect]
     Indication: VENTRICULAR FIBRILLATION
     Dosage: (1 MG), INTRAVENOUS BOLUS, UNKNOWN (4 TOTAL), INTRAVENOUS BOLUS
     Route: 040
  5. XYLOCAINE W/ EPINEPHRINE [Suspect]
     Indication: ANAESTHESIA
     Dosage: (Y), NASAL
     Route: 045
  6. ATROPINE [Concomitant]
  7. DICLOFENAC SODIUM [Concomitant]
  8. NITROUS OXIDE W/ OXYGEN [Concomitant]
  9. LIDOCAINE [Concomitant]
  10. ONDANSETRON HYDROCHLORIDE [Suspect]
     Indication: PRODUCT USED FOR UNKNOWN INDICATION
     Dosage: (4 MG), INTRAVENOUS
     Route: 042
  11. AMIODARONE HCL [Suspect]
     Indication: VENTRICULAR FIBRILLATION
     Dosage: (300 MG), UNKNOWN
  12. AMIODARONE HCL [Suspect]
     Indication: HYPOTENSION
     Dosage: (300 MG), UNKNOWN
  13. PROPOFOL [Concomitant]
  14. SODIUM BICARBONATE IN PLASTIC CONTAINER [Concomitant]
  15. COCAINE (COCAINE) [Suspect]
     Indication: ANAESTHESIA
     Dosage: (250 MG), NASAL
     Route: 045
  16. COCAINE (COCAINE) [Suspect]
     Indication: NASAL SEPTAL OPERATION
     Dosage: (250 MG), NASAL
     Route: 045
  17. FENTANYL [Concomitant]

REACTIONS (8)
  - ANAESTHETIC COMPLICATION CARDIAC [None]
  - CARDIAC ARREST [None]
  - BRADYCARDIA [None]
  - VENTRICULAR TACHYCARDIA [None]
  - VENTRICULAR FIBRILLATION [None]
  - LONG QT SYNDROME [None]
  - APNOEA [None]
  - HYPOTENSION [None]
